FAERS Safety Report 5646865-7 (Version None)
Quarter: 2008Q1

REPORT INFORMATION
  Report Type: 
  Country: None (occurrence: None)
  Receive Date: 20080228
  Receipt Date: 20080215
  Transmission Date: 20080703
  Serious: Yes (Hospitalization, Other)
  Sender: FDA-Public Use
  Company Number: 2008S1001727

PATIENT
  Age: 65 Year
  Sex: Male

DRUGS (2)
  1. LEVOTHYROXINE SODIUM [Suspect]
     Dosage: 150 UG;DAILY;ORAL
     Route: 048
     Dates: start: 20050519
  2. SUNITINIB MALATE (SUNITINIB MALATE) (25 MG) [Suspect]
     Indication: METASTATIC RENAL CELL CARCINOMA
     Dosage: 25 MG;DAILY; ORAL
     Route: 048
     Dates: start: 20071204, end: 20071230

REACTIONS (5)
  - ANAEMIA [None]
  - DEHYDRATION [None]
  - DIALYSIS [None]
  - LOSS OF CONSCIOUSNESS [None]
  - RENAL FAILURE [None]
